FAERS Safety Report 24282252 (Version 2)
Quarter: 2024Q3

REPORT INFORMATION
  Report Type: Spontaneous
  Country: IT (occurrence: IT)
  Receive Date: 20240904
  Receipt Date: 20240912
  Transmission Date: 20241016
  Serious: Yes (Death)
  Sender: DAIICHI
  Company Number: None

PATIENT
  Age: 79 Year
  Sex: Female
  Weight: 60 kg

DRUGS (1)
  1. TRASTUZUMAB DERUXTECAN [Suspect]
     Active Substance: TRASTUZUMAB DERUXTECAN
     Indication: Breast cancer stage IV
     Dosage: 300 MG, ONCE EVERY 3 WK (5.4 MG/KG (300 MG TOTAL DOSE EVERY 21 DAYS; 6 CYCLES ADMINISTERED))
     Route: 042
     Dates: start: 20240215, end: 20240531

REACTIONS (1)
  - Pneumonitis [Fatal]

NARRATIVE: CASE EVENT DATE: 20240617
